FAERS Safety Report 8242607-X (Version None)
Quarter: 2012Q1

REPORT INFORMATION
  Report Type: 
  Country: None (occurrence: None)
  Receive Date: 20120329
  Receipt Date: 20120326
  Transmission Date: 20120608
  Serious: Yes (Death, Hospitalization)
  Sender: FDA-Public Use
  Company Number: PHHY2012BR026232

PATIENT
  Sex: Female

DRUGS (6)
  1. MIRTAZAPINE [Concomitant]
     Indication: DEPRESSION
  2. CARBIDOPA AND LEVODOPA [Concomitant]
     Indication: PARKINSON'S DISEASE
  3. PRANDIN [Concomitant]
     Indication: DIABETES MELLITUS
     Dosage: 1 MG
  4. OSCAL D [Concomitant]
     Indication: MINERAL SUPPLEMENTATION
  5. EXELON [Suspect]
     Indication: DEMENTIA
     Route: 062
     Dates: start: 20111001
  6. DILTIAZEM [Concomitant]
     Indication: HYPERTENSION

REACTIONS (3)
  - URINARY TRACT INFECTION [None]
  - INTESTINAL OBSTRUCTION [None]
  - DEATH [None]
